FAERS Safety Report 8178406-7 (Version None)
Quarter: 2012Q1

REPORT INFORMATION
  Report Type: 
  Country: None (occurrence: None)
  Receive Date: 20120301
  Receipt Date: 20110908
  Transmission Date: 20120608
  Serious: Yes (Hospitalization)
  Sender: FDA-Public Use
  Company Number: FR-PFIZER INC-K201001276

PATIENT
  Age: 67 Year
  Sex: Male
  Weight: 115.7 kg

DRUGS (18)
  1. CARVEDILOL [Concomitant]
     Dosage: 25 MG, UNK
  2. AMARYL [Concomitant]
     Dosage: 4 MG, UNK
     Dates: end: 20100924
  3. ATORVASTATIN [Concomitant]
     Dosage: UNK
     Dates: end: 20100924
  4. FUROSEMIDE [Suspect]
     Indication: CORONARY ARTERY DISEASE
     Dosage: 20 MG, 1X/DAY
     Route: 048
  5. PANTOPRAZOLE [Suspect]
     Indication: NAUSEA
     Dosage: 20 MG, 1X/DAY
     Route: 048
     Dates: start: 20100904, end: 20100924
  6. PLACEBO [Suspect]
     Indication: TYPE 2 DIABETES MELLITUS
     Dosage: UNK
     Route: 048
     Dates: start: 20100811, end: 20100924
  7. ASPIRIN [Suspect]
     Dosage: UNK
  8. METFORMIN HCL [Suspect]
     Indication: TYPE 2 DIABETES MELLITUS
     Dosage: 3000 MG, 1X/DAY
     Route: 048
     Dates: end: 20100924
  9. ENDEP [Concomitant]
  10. MOTILIUM [Concomitant]
     Dosage: UNK
     Dates: start: 20100920, end: 20100924
  11. LOPERAMIDE HYDROCHLORIDE [Concomitant]
     Dosage: UNK
     Dates: start: 20100807, end: 20100823
  12. INSULIN [Concomitant]
     Dosage: UNK
     Dates: start: 20100924, end: 20100928
  13. PROCHLORPERAZINE [Concomitant]
     Dosage: UNK
     Dates: start: 20100820, end: 20100906
  14. ALTACE [Suspect]
     Indication: MICROALBUMINURIA
     Dosage: 10 MG, 1X/DAY
     Route: 048
  15. NOVORAPID [Concomitant]
     Dosage: UNK
     Dates: start: 20100928
  16. ACETAMINOPHEN AND CODEINE PHOSPHATE [Concomitant]
  17. MIXTARD HUMAN 70/30 [Concomitant]
     Dosage: UNK
     Dates: start: 20100601, end: 20100924
  18. LANTUS [Concomitant]
     Dosage: UNK
     Dates: start: 20100928

REACTIONS (1)
  - RENAL FAILURE ACUTE [None]
